FAERS Safety Report 4581349-9 (Version None)
Quarter: 2005Q1

REPORT INFORMATION
  Report Type: 
  Country: None (occurrence: None)
  Receive Date: 20050214
  Receipt Date: 20041004
  Transmission Date: 20050727
  Serious: Yes (Other)
  Sender: FDA-Public Use
  Company Number: US-GLAXOSMITHKLINE-A0528413A

PATIENT
  Age: 7 Year
  Sex: Female

DRUGS (3)
  1. LAMICTAL [Suspect]
     Indication: EPILEPSY
     Dosage: 87.5MG PER DAY
     Route: 048
     Dates: start: 20040701
  2. CARBAMAZEPINE [Concomitant]
  3. NITROFURANTOIN [Concomitant]

REACTIONS (2)
  - CONVULSION [None]
  - STATUS EPILEPTICUS [None]
